FAERS Safety Report 18907494 (Version 1)
Quarter: 2021Q1

REPORT INFORMATION
  Report Type: Spontaneous
  Country: GB (occurrence: GB)
  Receive Date: 20210217
  Receipt Date: 20210217
  Transmission Date: 20210420
  Serious: Yes (Other)
  Sender: FDA-Public Use
  Company Number: GB-BAXTER-2021BAX002790

PATIENT
  Sex: Female

DRUGS (1)
  1. BUPIVACAINE?CLARIS 5MG/ML SOLUTION FOR INJECTION [Suspect]
     Active Substance: BUPIVACAINE HYDROCHLORIDE
     Indication: POSTOPERATIVE ANALGESIA
     Dosage: EXTRACUTANEOUS INFRAORBITAL NERVE BLOCK
     Route: 065

REACTIONS (3)
  - Visual acuity reduced [Recovered/Resolved]
  - Ophthalmoplegia [Recovered/Resolved]
  - Eyelid ptosis [Recovered/Resolved]
